FAERS Safety Report 8185023-1 (Version None)
Quarter: 2012Q1

REPORT INFORMATION
  Report Type: 
  Country: None (occurrence: None)
  Receive Date: 20120301
  Receipt Date: 20120224
  Transmission Date: 20120608
  Serious: Yes (Hospitalization)
  Sender: FDA-Public Use
  Company Number: 934233

PATIENT
  Age: 41 Year
  Sex: Female
  Weight: 99.7913 kg

DRUGS (1)
  1. MURINE EAR WAX REMOVAL SYSTEM [Suspect]
     Dosage: APPLIED INTO LEFT EAR
     Dates: start: 20120218

REACTIONS (3)
  - DIZZINESS [None]
  - BLOOD PRESSURE INCREASED [None]
  - PALPITATIONS [None]
